FAERS Safety Report 18397997 (Version 1)
Quarter: 2020Q4

REPORT INFORMATION
  Report Type: Spontaneous
  Country: GB (occurrence: GB)
  Receive Date: 20201019
  Receipt Date: 20201019
  Transmission Date: 20210114
  Serious: Yes (Other)
  Sender: FDA-Public Use
  Company Number: GB-TEVA-2020-GB-1838833

PATIENT
  Age: 50 Year
  Sex: Female
  Weight: 88.9 kg

DRUGS (4)
  1. BUTRANS [Concomitant]
     Active Substance: BUPRENORPHINE
     Dates: start: 2006
  2. BUSCOPAN [Concomitant]
     Active Substance: BUTYLSCOPOLAMINE BROMIDE
  3. FOLIC ACID. [Suspect]
     Active Substance: FOLIC ACID
     Indication: FOLATE DEFICIENCY
     Dosage: 5MG
     Route: 048
     Dates: start: 20200909, end: 20200910
  4. BACLOFEN. [Concomitant]
     Active Substance: BACLOFEN
     Dates: start: 2004

REACTIONS (2)
  - Abdominal distension [Recovering/Resolving]
  - Abdominal pain [Recovered/Resolved]

NARRATIVE: CASE EVENT DATE: 20200910
